FAERS Safety Report 25243786 (Version 1)
Quarter: 2025Q2

REPORT INFORMATION
  Report Type: Spontaneous
  Country: US (occurrence: US)
  Receive Date: 20250428
  Receipt Date: 20250428
  Transmission Date: 20250716
  Serious: Yes (Other)
  Sender: ZYDUS PHARM
  Company Number: US-CADILA HEALTHCARE LIMITED-US-ZYDUS-122537

PATIENT

DRUGS (2)
  1. BETAMETHASONE [Suspect]
     Active Substance: BETAMETHASONE
     Indication: Eosinophilic oesophagitis
     Route: 014
  2. BUDESONIDE [Concomitant]
     Active Substance: BUDESONIDE
     Indication: Eosinophilic oesophagitis
     Route: 048

REACTIONS (1)
  - Pancreatitis acute [Recovered/Resolved]
